FAERS Safety Report 8342104-7 (Version None)
Quarter: 2012Q2

REPORT INFORMATION
  Report Type: 
  Country: None (occurrence: None)
  Receive Date: 20120507
  Receipt Date: 20120504
  Transmission Date: 20120825
  Serious: No
  Sender: FDA-Public Use
  Company Number: US-PFIZER INC-2012110316

PATIENT
  Sex: Female
  Weight: 77.1 kg

DRUGS (3)
  1. FLEXERIL [Concomitant]
     Indication: MYALGIA
     Dosage: UNK
  2. GABAPENTIN [Suspect]
     Indication: MYALGIA
     Dosage: 300 MG, 1X/DAY
     Route: 048
     Dates: start: 20120101, end: 20120503
  3. ACYCLOVIR [Concomitant]
     Indication: ILL-DEFINED DISORDER
     Dosage: 400 MG, UNK

REACTIONS (3)
  - OEDEMA PERIPHERAL [None]
  - MYALGIA [None]
  - WEIGHT INCREASED [None]
